FAERS Safety Report 11785376 (Version 1)
Quarter: 2015Q4

REPORT INFORMATION
  Report Type: Spontaneous
  Country: US (occurrence: US)
  Receive Date: 20151130
  Receipt Date: 20151130
  Transmission Date: 20160305
  Serious: No
  Sender: FDA-Public Use
  Company Number: US-JNJFOC-20151008004

PATIENT
  Age: 67 Year
  Sex: Male
  Weight: 122.47 kg

DRUGS (3)
  1. BLOOD THINNER [Concomitant]
     Active Substance: UNSPECIFIED INGREDIENT
     Indication: CARDIAC DISORDER
     Route: 065
  2. TYLENOL EXTRA STRENGTH [Suspect]
     Active Substance: ACETAMINOPHEN
     Indication: ARTHRALGIA
     Dosage: HE HAS BEEN DOING THIS ONAND OFF FOR ABOUT 4 MONTHS
     Route: 048
  3. TYLENOL PM EXTRA STRENGTH [Suspect]
     Active Substance: ACETAMINOPHEN\DIPHENHYDRAMINE HYDROCHLORIDE
     Indication: ARTHRALGIA
     Dosage: NIGHTLY, HE HAD BEEN DOING THIS ON AND OFF??FOR ABOUT 4 MONTHS.
     Route: 048

REACTIONS (1)
  - Drug administration error [Unknown]
